FAERS Safety Report 12124625 (Version 1)
Quarter: 2016Q1

REPORT INFORMATION
  Report Type: Other
  Country: GB (occurrence: GB)
  Receive Date: 20160229
  Receipt Date: 20160229
  Transmission Date: 20160526
  Serious: Yes (Other)
  Sender: FDA-Public Use
  Company Number: GB-MYLANLABS-2016M1007248

PATIENT

DRUGS (6)
  1. NUTRITION 12 [Concomitant]
     Active Substance: IRON\MINERALS\VITAMINS
     Dosage: 1 DF, QD
     Dates: start: 20160106, end: 20160203
  2. GABAPENTIN. [Suspect]
     Active Substance: GABAPENTIN
     Dosage: UNK
     Dates: start: 20140403
  3. RANITIDINE [Concomitant]
     Active Substance: RANITIDINE\RANITIDINE HYDROCHLORIDE
     Dosage: 1 DF, BID
     Dates: start: 20151201
  4. OMEPRAZOLE. [Concomitant]
     Active Substance: OMEPRAZOLE
     Dosage: 1 DF, BID
     Dates: start: 20130617, end: 20151201
  5. BALNEUM                            /01648802/ [Concomitant]
     Dosage: UNK (APPLY TWICE DAILY)
     Dates: start: 20151201
  6. DIPROBASE                          /01210201/ [Concomitant]
     Dosage: AS DIRECTED
     Dates: start: 20011017, end: 20151231

REACTIONS (1)
  - Acute kidney injury [Not Recovered/Not Resolved]

NARRATIVE: CASE EVENT DATE: 20160208
